FAERS Safety Report 8089030-9 (Version None)
Quarter: 2012Q1

REPORT INFORMATION
  Report Type: 
  Country: None (occurrence: None)
  Receive Date: 20120128
  Receipt Date: 20110618
  Transmission Date: 20120608
  Serious: No
  Sender: FDA-Public Use
  Company Number: US-ABBOTT-11P-163-0699629-00

PATIENT
  Sex: Female
  Weight: 49.032 kg

DRUGS (7)
  1. TRAZODONE HCL [Concomitant]
     Indication: SLEEP DISORDER
     Dosage: DAILY
  2. SERTRALINE HYDROCHLORIDE [Concomitant]
     Indication: ANXIETY
  3. HUMIRA [Suspect]
     Dates: start: 20110101
  4. AZATHIOPRINE [Concomitant]
     Indication: CROHN'S DISEASE
     Dosage: BEING WEANED
  5. HUMIRA [Suspect]
     Indication: CROHN'S DISEASE
     Dosage: DAY 1
     Route: 058
     Dates: start: 20110114, end: 20110114
  6. SERTRALINE HYDROCHLORIDE [Concomitant]
     Indication: DEPRESSION
     Dosage: DAILY
  7. DESOGESTREL AND ETHINYL ESTRADIOL [Concomitant]
     Indication: CONTRACEPTION
     Dosage: DAILY

REACTIONS (6)
  - PRURITUS [None]
  - ABDOMINAL PAIN [None]
  - ARTHRALGIA [None]
  - HAEMATOCHEZIA [None]
  - INJECTION SITE SWELLING [None]
  - INJECTION SITE PRURITUS [None]
